FAERS Safety Report 14077989 (Version 1)
Quarter: 2017Q4

REPORT INFORMATION
  Report Type: Spontaneous
  Country: US (occurrence: US)
  Receive Date: 20171012
  Receipt Date: 20171012
  Transmission Date: 20180321
  Serious: No
  Sender: FDA-Public Use
  Company Number: US-MYLANLABS-2017M1014537

PATIENT
  Age: 58 Year
  Sex: Female
  Weight: 78.91 kg

DRUGS (2)
  1. ESTRADIOL TRANSDERMAL SYSTEM [Suspect]
     Active Substance: ESTRADIOL
     Indication: MENOPAUSE
     Dosage: 0.025 MG,/DAY, CHANGE WEEKLY
     Route: 062
     Dates: start: 20170303, end: 20170305
  2. PROGESTERONE. [Concomitant]
     Active Substance: PROGESTERONE
     Indication: MENOPAUSE
     Dosage: 100 MG, UNK
     Route: 048
     Dates: start: 20170303, end: 20170305

REACTIONS (1)
  - Hot flush [Recovering/Resolving]

NARRATIVE: CASE EVENT DATE: 20170303
